FAERS Safety Report 8499601-3 (Version None)
Quarter: 2012Q3

REPORT INFORMATION
  Report Type: 
  Country: None (occurrence: None)
  Receive Date: 20120710
  Receipt Date: 20120628
  Transmission Date: 20120928
  Serious: No
  Sender: FDA-Public Use
  Company Number: US-009507513-1206USA05439

PATIENT

DRUGS (8)
  1. ASPIRIN [Concomitant]
  2. CLINDAMYCIN [Concomitant]
  3. WELCHOL [Concomitant]
  4. FOLIC ACID [Concomitant]
  5. LISINOPRIL [Concomitant]
  6. JANUVIA [Suspect]
     Indication: TYPE 2 DIABETES MELLITUS
     Dosage: 100 MG, QD
     Route: 048
     Dates: start: 20120501
  7. GLIPIZIDE [Concomitant]
  8. ATENOLOL [Concomitant]

REACTIONS (1)
  - ASTHENIA [None]
